FAERS Safety Report 6888277-4 (Version None)
Quarter: 2010Q3

REPORT INFORMATION
  Report Type: 
  Country: None (occurrence: None)
  Receive Date: 20100730
  Receipt Date: 20100727
  Transmission Date: 20110219
  Serious: Yes (Hospitalization)
  Sender: FDA-Public Use
  Company Number: DE-BRISTOL-MYERS SQUIBB COMPANY-15013691

PATIENT
  Age: 71 Year
  Sex: Male
  Weight: 82 kg

DRUGS (2)
  1. CISPLATIN [Suspect]
     Indication: GASTROOESOPHAGEAL CANCER
     Dosage: DAY ONE ON THE CYCLE
     Route: 042
     Dates: start: 20100303
  2. CAPECITABINE [Suspect]
     Indication: GASTROOESOPHAGEAL CANCER
     Dosage: DAY 1- 15 MOST RECENT INFU:05-MAR-2010
     Route: 048
     Dates: start: 20100303

REACTIONS (5)
  - ABDOMINAL PAIN [None]
  - CHILLS [None]
  - COLD SWEAT [None]
  - DYSURIA [None]
  - VOMITING [None]
